FAERS Safety Report 7433477-8 (Version None)
Quarter: 2011Q2

REPORT INFORMATION
  Report Type: 
  Country: None (occurrence: None)
  Receive Date: 20110422
  Receipt Date: 20110101
  Transmission Date: 20111010
  Serious: No
  Sender: FDA-Public Use
  Company Number: US-MUTUAL PHARMACEUTICAL COMPANY, INC.-CLCY20110001

PATIENT
  Sex: Male
  Weight: 115.77 kg

DRUGS (3)
  1. ASPIRIN [Concomitant]
     Indication: PRODUCT USED FOR UNKNOWN INDICATION
     Route: 048
  2. TART CHERRY AND HERB MIX [Concomitant]
     Indication: GOUT
     Route: 048
  3. COLCRYS [Suspect]
     Indication: GOUT
     Route: 048
     Dates: start: 20101227

REACTIONS (2)
  - DRUG INEFFECTIVE [None]
  - DIARRHOEA [None]
